FAERS Safety Report 20149905 (Version 1)
Quarter: 2021Q4

REPORT INFORMATION
  Report Type: Spontaneous
  Country: CH (occurrence: CH)
  Receive Date: 20211206
  Receipt Date: 20211206
  Transmission Date: 20220303
  Serious: Yes (Other)
  Sender: FDA-Public Use
  Company Number: None

PATIENT
  Age: 64 Year
  Sex: Male

DRUGS (6)
  1. MYCOPHENOLATE MOFETIL [Suspect]
     Active Substance: MYCOPHENOLATE MOFETIL
     Indication: Immunosuppressant drug therapy
     Dosage: UNK
     Route: 065
     Dates: start: 2019, end: 2019
  2. TACROLIMUS [Suspect]
     Active Substance: TACROLIMUS
     Indication: Product used for unknown indication
     Dosage: 8 MILLIGRAM, BID
     Route: 048
     Dates: start: 20180319, end: 201901
  3. CYCLOSPORINE [Suspect]
     Active Substance: CYCLOSPORINE
     Indication: Immunosuppressant drug therapy
     Dosage: UNK
     Route: 065
     Dates: start: 2019, end: 2019
  4. LETERMOVIR [Suspect]
     Active Substance: LETERMOVIR
     Indication: Antiviral prophylaxis
     Dosage: 240 MILLIGRAM, OD
     Route: 065
     Dates: start: 2019, end: 2019
  5. METHYLPREDNISOLONE [Suspect]
     Active Substance: METHYLPREDNISOLONE
     Indication: Transplant rejection
     Dosage: 500 MILLIGRAM, OD
     Route: 065
     Dates: start: 2019, end: 2019
  6. PREDNISONE [Suspect]
     Active Substance: PREDNISONE
     Indication: Transplant rejection
     Dosage: 5 MILLIGRAM, OD
     Route: 065
     Dates: start: 20180319

REACTIONS (6)
  - Cytomegalovirus infection [Recovered/Resolved]
  - Viral infection [Recovered/Resolved]
  - Pathogen resistance [Recovered/Resolved]
  - Toxicity to various agents [Unknown]
  - Colitis [Unknown]
  - Drug level increased [Unknown]

NARRATIVE: CASE EVENT DATE: 20190101
